FAERS Safety Report 8421771-3 (Version None)
Quarter: 2012Q2

REPORT INFORMATION
  Report Type: 
  Country: None (occurrence: None)
  Receive Date: 20120605
  Receipt Date: 20120605
  Transmission Date: 20120825
  Serious: Yes (Hospitalization, Other)
  Sender: FDA-Public Use
  Company Number: None

PATIENT
  Age: 71 Year
  Sex: Male
  Weight: 99.7913 kg

DRUGS (1)
  1. PRADAXA [Suspect]
     Dosage: ONE DAILY MOUTH

REACTIONS (6)
  - UNEVALUABLE EVENT [None]
  - PAIN [None]
  - HAEMORRHAGE [None]
  - DYSPEPSIA [None]
  - GAIT DISTURBANCE [None]
  - HEADACHE [None]
